FAERS Safety Report 9559442 (Version 1)
Quarter: 2013Q3

REPORT INFORMATION
  Report Type: Spontaneous
  Country: DE (occurrence: DE)
  Receive Date: 20130927
  Receipt Date: 20130927
  Transmission Date: 20140515
  Serious: Yes (Hospitalization, Other)
  Sender: FDA-Public Use
  Company Number: DE-ELI_LILLY_AND_COMPANY-DE201309006047

PATIENT
  Age: 20 Year
  Sex: Female
  Weight: 74 kg

DRUGS (5)
  1. FLUOXETINE HYDROCHLORIDE [Suspect]
     Indication: DEPRESSION
     Dosage: 10 MG, UNKNOWN
     Dates: start: 20130801, end: 20130817
  2. FLUOXETINE HYDROCHLORIDE [Suspect]
     Dosage: 20 MG, UNKNOWN
     Dates: start: 20130801, end: 20130817
  3. MOCLOBEMIDE [Suspect]
     Indication: DEPRESSION
     Dosage: 150 MG, UNKNOWN
     Dates: start: 20130819, end: 20130820
  4. DOMINAL [Concomitant]
     Indication: NIGHTMARE
     Dosage: 80 MG, UNKNOWN
     Dates: start: 20130801, end: 20130819
  5. TAVOR [Concomitant]
     Indication: AGITATION
     Dosage: 1 DF, UNKNOWN

REACTIONS (2)
  - Loss of consciousness [Recovering/Resolving]
  - Euphoric mood [Recovering/Resolving]
